FAERS Safety Report 7242387-0 (Version None)
Quarter: 2011Q1

REPORT INFORMATION
  Report Type: 
  Country: None (occurrence: None)
  Receive Date: 20110125
  Receipt Date: 20110112
  Transmission Date: 20110831
  Serious: Yes (Other)
  Sender: FDA-Public Use
  Company Number: US-BIOGENIDEC-2010BI045214

PATIENT
  Age: 39 Year
  Sex: Female

DRUGS (1)
  1. TYSABRI [Suspect]
     Indication: MULTIPLE SCLEROSIS
     Route: 042
     Dates: start: 20071227

REACTIONS (17)
  - ROAD TRAFFIC ACCIDENT [None]
  - ARTHRITIS [None]
  - COGNITIVE DISORDER [None]
  - FALL [None]
  - FATIGUE [None]
  - ANAPHYLACTIC REACTION [None]
  - DEPRESSION [None]
  - MOBILITY DECREASED [None]
  - PSYCHOTIC DISORDER [None]
  - VISUAL IMPAIRMENT [None]
  - MUSCLE SPASMS [None]
  - DYSPHAGIA [None]
  - MENTAL STATUS CHANGES [None]
  - MENTAL IMPAIRMENT [None]
  - MIGRAINE [None]
  - BLOOD GLUCOSE INCREASED [None]
  - BURNOUT SYNDROME [None]
